FAERS Safety Report 5816503-9 (Version None)
Quarter: 2008Q3

REPORT INFORMATION
  Report Type: 
  Country: None (occurrence: None)
  Receive Date: 20080717
  Receipt Date: 20080717
  Transmission Date: 20090109
  Serious: Yes (Other)
  Sender: FDA-Public Use
  Company Number: None

PATIENT
  Age: 61 Year
  Sex: Female
  Weight: 71.6683 kg

DRUGS (1)
  1. GABAPENTIN [Suspect]
     Indication: DIABETIC NEUROPATHY
     Dosage: TWO TIMES A DAY PO
     Route: 048
     Dates: start: 20080619, end: 20080626

REACTIONS (8)
  - BACK PAIN [None]
  - DRUG DOSE OMISSION [None]
  - DYSPNOEA [None]
  - MEMORY IMPAIRMENT [None]
  - RASH [None]
  - SKIN DISCOLOURATION [None]
  - SKIN EXFOLIATION [None]
  - WEIGHT INCREASED [None]
